FAERS Safety Report 5701114-6 (Version None)
Quarter: 2008Q2

REPORT INFORMATION
  Report Type: 
  Country: None (occurrence: None)
  Receive Date: 20080410
  Receipt Date: 20080225
  Transmission Date: 20081010
  Serious: Yes (Hospitalization, Other)
  Sender: FDA-Public Use
  Company Number: US-PFIZER INC-2007101891

PATIENT
  Sex: Female

DRUGS (1)
  1. BEXTRA [Suspect]
     Indication: ARTHRITIS
     Route: 048

REACTIONS (3)
  - CARDIOVASCULAR DISORDER [None]
  - MUSCLE SPASMS [None]
  - MYOCARDIAL INFARCTION [None]
